FAERS Safety Report 11884386 (Version 11)
Quarter: 2018Q3

REPORT INFORMATION
  Report Type: Report from Study
  Country: CA (occurrence: CA)
  Receive Date: 20160103
  Receipt Date: 20180914
  Transmission Date: 20181010
  Serious: Yes (Hospitalization)
  Sender: FDA-Public Use
  Company Number: PHHY2014CA122614

PATIENT
  Age: 68 Year
  Sex: Female

DRUGS (3)
  1. SANDOSTATIN LAR DEPOT [Suspect]
     Active Substance: OCTREOTIDE ACETATE
     Dosage: 30 MG, QMO (EVERY 4 WEEKS)
     Route: 030
     Dates: start: 20150213
  2. SANDOSTATIN [Suspect]
     Active Substance: OCTREOTIDE ACETATE
     Indication: NEUROENDOCRINE TUMOUR
     Dosage: 150 UG, TID
     Route: 058
     Dates: start: 20140710, end: 201409
  3. SANDOSTATIN LAR DEPOT [Suspect]
     Active Substance: OCTREOTIDE ACETATE
     Indication: NEUROENDOCRINE TUMOUR
     Dosage: 20 MG, QMO  (EVERY 4 WEEKS)
     Route: 030
     Dates: start: 20140923, end: 20150116

REACTIONS (23)
  - Pulmonary oedema [Unknown]
  - Eating disorder [Recovered/Resolved]
  - Arthralgia [Unknown]
  - Flank pain [Unknown]
  - Cardiac disorder [Unknown]
  - Faeces pale [Unknown]
  - Nausea [Recovered/Resolved]
  - Tachycardia [Unknown]
  - Depression [Recovered/Resolved]
  - Depression [Unknown]
  - Apathy [Unknown]
  - Joint swelling [Unknown]
  - Injection site haematoma [Unknown]
  - Injection site pain [Unknown]
  - Hepatic mass [Unknown]
  - Blood pressure increased [Recovering/Resolving]
  - Chest pain [Unknown]
  - Pain [Unknown]
  - Oropharyngeal pain [Unknown]
  - Bone pain [Unknown]
  - Metastases to liver [Unknown]
  - Dyspnoea [Unknown]
  - Musculoskeletal chest pain [Not Recovered/Not Resolved]

NARRATIVE: CASE EVENT DATE: 201407
